FAERS Safety Report 8430457-0 (Version None)
Quarter: 2012Q2

REPORT INFORMATION
  Report Type: 
  Country: None (occurrence: None)
  Receive Date: 20120606
  Receipt Date: 20120606
  Transmission Date: 20120825
  Serious: No
  Sender: FDA-Public Use
  Company Number: None

PATIENT
  Age: 62 Year
  Sex: Male
  Weight: 97.7 kg

DRUGS (1)
  1. HYDROMORPHONE HCL [Suspect]
     Dosage: PRN SQ
     Route: 058
     Dates: start: 20120401, end: 20120401

REACTIONS (2)
  - MENTAL STATUS CHANGES [None]
  - RESPIRATORY DEPRESSION [None]
